FAERS Safety Report 4866531-5 (Version None)
Quarter: 2005Q4

REPORT INFORMATION
  Report Type: 
  Country: None (occurrence: None)
  Receive Date: 20051221
  Receipt Date: 20051213
  Transmission Date: 20060501
  Serious: Yes (Death)
  Sender: FDA-Public Use
  Company Number: 2005-US-00879

PATIENT
  Age: 77 Year
  Sex: Female

DRUGS (9)
  1. CLOZAPINE [Suspect]
     Indication: PARKINSON'S DISEASE
     Dosage: 50 MG QD, ORAL
     Route: 048
     Dates: start: 20030601, end: 20050801
  2. SINEMET [Concomitant]
  3. ENTACAPONE [Concomitant]
  4. PERGOLIDE MESYLATE [Concomitant]
  5. AMANTADINE HCL [Concomitant]
  6. IBUPROFEN [Concomitant]
  7. DONEPEZIL HYDROCHLORIDE [Concomitant]
  8. LEVOTHYROXINE SODIUM [Concomitant]
  9. PRAVASTATIN SODIUM [Concomitant]

REACTIONS (7)
  - CONDITION AGGRAVATED [None]
  - DYSKINESIA [None]
  - GAIT DISTURBANCE [None]
  - HALLUCINATION [None]
  - MYOCARDIAL INFARCTION [None]
  - SOMNOLENCE [None]
  - SPEECH DISORDER [None]
